FAERS Safety Report 25372775 (Version 2)
Quarter: 2025Q3

REPORT INFORMATION
  Report Type: Spontaneous
  Country: US (occurrence: US)
  Receive Date: 20250529
  Receipt Date: 20250710
  Transmission Date: 20251020
  Serious: Yes (Other)
  Sender: HIKMA
  Company Number: US-HIKMA PHARMACEUTICALS USA INC.-US-H14001-25-03063

PATIENT
  Age: 79 Year
  Sex: Female

DRUGS (5)
  1. AMLODIPINE [Suspect]
     Active Substance: AMLODIPINE BESYLATE
     Indication: Hypertension
     Route: 065
     Dates: start: 20250304
  2. AMLODIPINE [Suspect]
     Active Substance: AMLODIPINE BESYLATE
     Indication: Hypertension
     Route: 042
  3. HYDRALAZINE HYDROCHLORIDE [Suspect]
     Active Substance: HYDRALAZINE HYDROCHLORIDE
     Indication: Hypertension
     Route: 042
     Dates: start: 20250304
  4. MORPHINE [Suspect]
     Active Substance: MORPHINE
     Indication: Pain
     Route: 042
     Dates: start: 20250304, end: 20250304
  5. VALIUM [Concomitant]
     Active Substance: DIAZEPAM
     Indication: Dysuria
     Dosage: 5 MILLIGRAM, BID
     Route: 065

REACTIONS (13)
  - Brain fog [Unknown]
  - Somnolence [Unknown]
  - Herpes zoster [Unknown]
  - Contusion [Recovered/Resolved]
  - Seizure [Recovered/Resolved]
  - Rash vesicular [Unknown]
  - Tremor [Recovered/Resolved]
  - Head titubation [Recovered/Resolved]
  - Dyskinesia [Recovered/Resolved]
  - Hypertension [Recovered/Resolved]
  - Swollen tongue [Recovered/Resolved]
  - Drug hypersensitivity [Recovered/Resolved]
  - Incorrect drug administration rate [Unknown]

NARRATIVE: CASE EVENT DATE: 20250304
